FAERS Safety Report 4560648-0 (Version None)
Quarter: 2005Q1

REPORT INFORMATION
  Report Type: 
  Country: None (occurrence: None)
  Receive Date: 20050125
  Receipt Date: 20050125
  Transmission Date: 20050727
  Serious: Yes (Life-Threatening)
  Sender: FDA-Public Use
  Company Number: None

PATIENT
  Age: 11 Year
  Sex: Female
  Weight: 55 kg

DRUGS (2)
  1. METHOTREXATE [Suspect]
     Indication: ACUTE LYMPHOCYTIC LEUKAEMIA
     Dosage: 2 GM M2 IV OVER 4 HRS
     Route: 042
     Dates: start: 20030714
  2. 6-MERGAPTOPERINE [Concomitant]

REACTIONS (1)
  - HOSPITALISATION [None]
